FAERS Safety Report 19703055 (Version 4)
Quarter: 2022Q2

REPORT INFORMATION
  Report Type: Spontaneous
  Country: US (occurrence: None)
  Receive Date: 20210816
  Receipt Date: 20220525
  Transmission Date: 20220720
  Serious: Yes (Other)
  Sender: FDA-Public Use
  Company Number: US-ROCHE-2884639

PATIENT
  Age: 79 Year
  Sex: Male
  Weight: 86.078 kg

DRUGS (10)
  1. LONSURF [Suspect]
     Active Substance: TIPIRACIL HYDROCHLORIDE\TRIFLURIDINE
     Indication: Colon cancer
     Dosage: CYCLE1
     Route: 048
     Dates: start: 20210324, end: 20210324
  2. AVASTIN [Suspect]
     Active Substance: BEVACIZUMAB
     Indication: Product used for unknown indication
     Route: 065
  3. BISOPROLOL [Concomitant]
     Active Substance: BISOPROLOL
  4. AMLODIPINE [Concomitant]
     Active Substance: AMLODIPINE BESYLATE
  5. BENAZEPRIL HYDROCHLORIDE [Concomitant]
     Active Substance: BENAZEPRIL HYDROCHLORIDE
  6. DOXAZOSIN [Concomitant]
     Active Substance: DOXAZOSIN MESYLATE
  7. AMLODIPINE BESYLATE;BENAZEPRIL [Concomitant]
  8. DOXAZOSIN MESYLATE [Concomitant]
     Active Substance: DOXAZOSIN MESYLATE
  9. ELIQUIS [Concomitant]
     Active Substance: APIXABAN
  10. FINASTERIDE [Concomitant]
     Active Substance: FINASTERIDE

REACTIONS (22)
  - Chronic kidney disease [Unknown]
  - Pulmonary embolism [Unknown]
  - Neutropenia [Unknown]
  - Arthritis [Recovering/Resolving]
  - Alopecia [Not Recovered/Not Resolved]
  - Arthralgia [Unknown]
  - Thrombocytopenia [Unknown]
  - Faeces soft [Not Recovered/Not Resolved]
  - Diarrhoea [Recovering/Resolving]
  - Nausea [Recovering/Resolving]
  - Taste disorder [Recovered/Resolved]
  - Fatigue [Unknown]
  - Vomiting [Unknown]
  - Decreased appetite [Unknown]
  - Anaemia [Unknown]
  - Asthenia [Unknown]
  - Stomatitis [Unknown]
  - Pyrexia [Unknown]
  - Hair texture abnormal [Not Recovered/Not Resolved]
  - Faeces soft [Recovered/Resolved]
  - Dyspnoea [Recovered/Resolved]
  - Skin discolouration [Unknown]
